FAERS Safety Report 7245347-9 (Version None)
Quarter: 2011Q1

REPORT INFORMATION
  Report Type: 
  Country: None (occurrence: None)
  Receive Date: 20110126
  Receipt Date: 20110119
  Transmission Date: 20110831
  Serious: Yes (Death, Hospitalization)
  Sender: FDA-Public Use
  Company Number: KR-ROCHE-754786

PATIENT
  Sex: Female

DRUGS (10)
  1. BLINDED TOCILIZUMAB [Concomitant]
     Route: 042
     Dates: start: 20100211, end: 20100628
  2. MELOXICAM [Concomitant]
     Route: 048
     Dates: start: 20090810, end: 20100823
  3. FOLIC ACID [Concomitant]
     Dates: start: 20080826
  4. METHOTREXATE [Concomitant]
     Route: 048
     Dates: start: 20090810
  5. PREDNISOLONE [Concomitant]
     Route: 048
     Dates: start: 20081010
  6. TOCILIZUMAB [Suspect]
     Indication: RHEUMATOID ARTHRITIS
     Route: 042
     Dates: start: 20100727, end: 20101214
  7. OYSTER SHELL [Concomitant]
     Dosage: DRUG : OYSTERSHELL POWER
     Route: 065
     Dates: start: 20081010
  8. RANITIDINE HYDROCHLORIDE [Concomitant]
     Dates: start: 20090810
  9. HYDROXYCHLOROQUINE [Concomitant]
     Route: 048
     Dates: start: 20081010
  10. MELOXICAM [Concomitant]
     Route: 048
     Dates: start: 20100824

REACTIONS (3)
  - SEPTIC SHOCK [None]
  - URINARY TRACT INFECTION [None]
  - DISSEMINATED INTRAVASCULAR COAGULATION [None]
